FAERS Safety Report 18079493 (Version 1)
Quarter: 2020Q3

REPORT INFORMATION
  Report Type: Spontaneous
  Country: US (occurrence: US)
  Receive Date: 20200727
  Receipt Date: 20200727
  Transmission Date: 20201103
  Serious: No
  Sender: FDA-Public Use
  Company Number: None

PATIENT
  Age: 26 Year
  Sex: Female
  Weight: 54 kg

DRUGS (2)
  1. EQUATE LICE TREATMENT [Suspect]
     Active Substance: PIPERONYL BUTOXIDE\PYRETHRUM EXTRACT
     Indication: LICE INFESTATION
     Dates: start: 20200727, end: 20200727
  2. MARINA BIRTHCONTROL [Concomitant]

REACTIONS (2)
  - Hair texture abnormal [None]
  - Trichorrhexis [None]

NARRATIVE: CASE EVENT DATE: 20200727
